FAERS Safety Report 5456901-9 (Version None)
Quarter: 2007Q3

REPORT INFORMATION
  Report Type: 
  Country: None (occurrence: None)
  Receive Date: 20070918
  Receipt Date: 20070531
  Transmission Date: 20080115
  Serious: Yes (Other)
  Sender: FDA-Public Use
  Company Number: US-ASTRAZENECA-2006UW27465

PATIENT
  Age: 523 Month
  Sex: Male
  Weight: 104.5 kg

DRUGS (4)
  1. SEROQUEL [Suspect]
     Indication: DEPRESSION
     Dosage: 1000 MG - 800 MG
     Route: 048
     Dates: start: 20051001, end: 20061101
  2. ABILIFY [Concomitant]
     Dates: start: 20060701
  3. RISPERDAL [Concomitant]
  4. CYMBALTA [Concomitant]
     Dates: start: 20050101

REACTIONS (2)
  - DIABETES MELLITUS [None]
  - PANCREATITIS [None]
